FAERS Safety Report 4658425-5 (Version None)
Quarter: 2005Q2

REPORT INFORMATION
  Report Type: 
  Country: None (occurrence: None)
  Receive Date: 20050510
  Receipt Date: 20050510
  Transmission Date: 20051028
  Serious: No
  Sender: FDA-Public Use
  Company Number: None

PATIENT
  Sex: Female

DRUGS (5)
  1. DEPAKOTE [Suspect]
     Dosage: 1500 MG 1 DAY , ORAL
     Route: 048
  2. RISPERDAL CONSTA [Concomitant]
  3. PROLIXIN [Concomitant]
  4. COGENTIN [Concomitant]
  5. ATIVAN [Concomitant]

REACTIONS (1)
  - PLATELET COUNT DECREASED [None]
